FAERS Safety Report 7131119-2 (Version None)
Quarter: 2010Q4

REPORT INFORMATION
  Report Type: 
  Country: None (occurrence: None)
  Receive Date: 20101201
  Receipt Date: 20101118
  Transmission Date: 20110411
  Serious: Yes (Other)
  Sender: FDA-Public Use
  Company Number: GXKR2010US13125

PATIENT
  Age: 64 Year
  Sex: Female

DRUGS (1)
  1. DEXAMETHASONE (NGX) [Suspect]
     Indication: CENTRAL NERVOUS SYSTEM LYMPHOMA
     Dosage: 4 MG, Q6H
     Route: 042

REACTIONS (4)
  - LUNG ABSCESS [None]
  - LUNG NEOPLASM [None]
  - ORGANISING PNEUMONIA [None]
  - PNEUMONIA LEGIONELLA [None]
